FAERS Safety Report 10173859 (Version 1)
Quarter: 2014Q2

REPORT INFORMATION
  Report Type: Spontaneous
  Country: FI (occurrence: FI)
  Receive Date: 20140515
  Receipt Date: 20140515
  Transmission Date: 20141212
  Serious: Yes (Hospitalization)
  Sender: FDA-Public Use
  Company Number: FI-EISAI INC-E2090-03261-SPO-FI

PATIENT
  Age: 33 Year
  Sex: Female

DRUGS (3)
  1. ZONEGRAN [Suspect]
     Indication: EPILEPSY
     Dosage: 150 MG
     Route: 048
     Dates: start: 2013, end: 20140219
  2. LAMACTIL [Concomitant]
     Indication: EPILEPSY
     Dosage: 500 MG
     Route: 048
  3. CANDESARTAN ACTAVIS [Concomitant]
     Indication: HYPERTENSION
     Dosage: 8 MG

REACTIONS (8)
  - Paranoia [Recovering/Resolving]
  - Hallucination, auditory [Recovering/Resolving]
  - Psychomotor hyperactivity [Recovering/Resolving]
  - Panic attack [Recovering/Resolving]
  - Self-injurious ideation [Recovering/Resolving]
  - Depression [Recovering/Resolving]
  - Petit mal epilepsy [Unknown]
  - Anxiety [Recovering/Resolving]
